FAERS Safety Report 5478841-1 (Version None)
Quarter: 2007Q4

REPORT INFORMATION
  Report Type: 
  Country: None (occurrence: None)
  Receive Date: 20071002
  Receipt Date: 20070919
  Transmission Date: 20080405
  Serious: Yes (Hospitalization, Other)
  Sender: FDA-Public Use
  Company Number: 340001L07FRA

PATIENT
  Age: 33 Year
  Sex: Female

DRUGS (2)
  1. OVIDREL [Suspect]
     Indication: OVULATION INDUCTION
     Dosage: SUBCUTANEOUS
  2. MENOPUR [Suspect]
     Indication: OVULATION INDUCTION

REACTIONS (5)
  - CAESAREAN SECTION [None]
  - DRUG EXPOSURE DURING PREGNANCY [None]
  - MULTIPLE PREGNANCY [None]
  - STREPTOCOCCAL IDENTIFICATION TEST POSITIVE [None]
  - UTERINE CONTRACTIONS ABNORMAL [None]
